FAERS Safety Report 10558839 (Version 4)
Quarter: 2015Q1

REPORT INFORMATION
  Report Type: Report from Study
  Country: CA (occurrence: CA)
  Receive Date: 20141031
  Receipt Date: 20150305
  Transmission Date: 20150720
  Serious: Yes (Other)
  Sender: FDA-Public Use
  Company Number: CA-ABBVIE-13P-028-1039296-00

PATIENT
  Age: 47 Year
  Sex: Female

DRUGS (2)
  1. HUMIRA [Suspect]
     Active Substance: ADALIMUMAB
     Indication: CROHN^S DISEASE
     Route: 058
     Dates: start: 20100129, end: 201207
  2. HUMIRA [Suspect]
     Active Substance: ADALIMUMAB
     Dosage: RESTARTED, RE-INDUCTION DOSE
     Route: 058
     Dates: start: 20150227, end: 20150227

REACTIONS (10)
  - Enteritis [Unknown]
  - Colostomy [Unknown]
  - Ileostomy [Unknown]
  - Drug ineffective [Not Recovered/Not Resolved]
  - Malaise [Unknown]
  - Polyp [Unknown]
  - Clostridium difficile infection [Unknown]
  - Gastrointestinal anastomotic leak [Unknown]
  - Colectomy [Unknown]
  - Pelvic pouch procedure [Unknown]

NARRATIVE: CASE EVENT DATE: 2012
